FAERS Safety Report 9845265 (Version 2)
Quarter: 2014Q1

REPORT INFORMATION
  Report Type: Spontaneous
  Country: FR (occurrence: None)
  Receive Date: 20140122
  Receipt Date: 20140319
  Transmission Date: 20141002
  Serious: Yes (Hospitalization)
  Sender: FDA-Public Use
  Company Number: SYM-2014-14966

PATIENT
  Age: 77 Year
  Sex: Female

DRUGS (3)
  1. TIMOPTOL OPHTHAL SOL 0.5% [Suspect]
     Indication: OCULAR HYPERTENSION
     Dosage: 1 GTT, 1 IN 1 D, OPTHALMIC
     Dates: start: 20130620, end: 20131205
  2. TIMOPTOL LP 0.25%, COLLYRE EN SOLUTION (TIMOLOL MALEATE) (0.25 PERCENT, EYE GEL) (TIMOLOL MALEATE) [Concomitant]
  3. LANZOPRAZOL (LANSOPRAZOLE) (LANSOPRAZOLE) [Concomitant]

REACTIONS (5)
  - Confusional state [None]
  - Dizziness [None]
  - Orthostatic hypotension [None]
  - Fall [None]
  - Urticaria [None]
